FAERS Safety Report 4757203-6 (Version None)
Quarter: 2005Q3

REPORT INFORMATION
  Report Type: 
  Country: None (occurrence: None)
  Receive Date: 20050829
  Receipt Date: 20050816
  Transmission Date: 20060218
  Serious: Yes (Hospitalization, Other)
  Sender: FDA-Public Use
  Company Number: 2005US001001

PATIENT
  Age: 81 Year
  Sex: Male
  Weight: 83 kg

DRUGS (8)
  1. ADENOSCAN [Suspect]
     Indication: SCAN MYOCARDIAL PERFUSION
     Dosage: 23.20 MG, TOTAL DOSE, IV NOS
     Route: 042
     Dates: start: 20050617, end: 20050617
  2. CARDIOLITE [Concomitant]
  3. ASPIRIN [Concomitant]
  4. ATENOLOL [Concomitant]
  5. LIPITOR [Concomitant]
  6. SYNTHROID [Concomitant]
  7. DOXAZOSIN (DOXAZOSIN) [Concomitant]
  8. LISINOPRIL [Concomitant]

REACTIONS (5)
  - DYSPNOEA [None]
  - FEELING COLD [None]
  - HYPOTENSION [None]
  - PROCEDURAL COMPLICATION [None]
  - PYREXIA [None]
